FAERS Safety Report 7685053-X (Version None)
Quarter: 2011Q3

REPORT INFORMATION
  Report Type: 
  Country: None (occurrence: None)
  Receive Date: 20110816
  Receipt Date: 20110805
  Transmission Date: 20111222
  Serious: Yes (Other)
  Sender: FDA-Public Use
  Company Number: CA-JNJFOC-20110705269

PATIENT
  Sex: Female
  Weight: 74.84 kg

DRUGS (4)
  1. INVEGA [Suspect]
     Indication: PRODUCT USED FOR UNKNOWN INDICATION
     Route: 048
  2. SEROQUEL [Suspect]
     Indication: PRODUCT USED FOR UNKNOWN INDICATION
     Route: 065
     Dates: start: 20090101, end: 20110701
  3. INVEGA [Suspect]
     Route: 048
     Dates: start: 20090101
  4. CELEXA [Concomitant]
     Route: 065
     Dates: start: 20110301

REACTIONS (3)
  - HEPATIC ENZYME ABNORMAL [None]
  - HEPATIC STEATOSIS [None]
  - HYPERPROLACTINAEMIA [None]
